FAERS Safety Report 20110004 (Version 1)
Quarter: 2021Q4

REPORT INFORMATION
  Report Type: Spontaneous
  Country: US (occurrence: US)
  Receive Date: 20211124
  Receipt Date: 20211124
  Transmission Date: 20220303
  Serious: No
  Sender: FDA-Public Use
  Company Number: US-Kaleo, Inc.-2021KL000138

PATIENT
  Age: 3 Year
  Sex: Female

DRUGS (2)
  1. AUVI-Q [Suspect]
     Active Substance: EPINEPHRINE
     Indication: Anaphylactic reaction
     Dates: start: 20211029, end: 20211029
  2. AUVI-Q [Suspect]
     Active Substance: EPINEPHRINE
     Dates: start: 20211029, end: 20211029

REACTIONS (2)
  - Device failure [Not Recovered/Not Resolved]
  - Drug dose omission by device [Not Recovered/Not Resolved]

NARRATIVE: CASE EVENT DATE: 20211029
